FAERS Safety Report 4843693-7 (Version None)
Quarter: 2005Q4

REPORT INFORMATION
  Report Type: 
  Country: None (occurrence: None)
  Receive Date: 20051129
  Receipt Date: 20051115
  Transmission Date: 20060501
  Serious: Yes (Hospitalization)
  Sender: FDA-Public Use
  Company Number: DE200511000848

PATIENT
  Age: 90 Year
  Sex: Female

DRUGS (11)
  1. FORTEO [Suspect]
     Indication: OSTEOPOROSIS
     Dosage: 20 UG, DAILY (1/D), SUBCUTANEOUS
     Route: 058
     Dates: start: 20041201, end: 20051101
  2. BETA BLOCKING AGENTS [Concomitant]
  3. ENALAPRIL MALEATE [Concomitant]
  4. ALLOPURINOL [Concomitant]
  5. PARACETAMOL (PARACETAMOL) [Concomitant]
  6. PANTOPRAZOLE SODIUM [Concomitant]
  7. DIGITALIS CAP [Concomitant]
  8. CALCIUM (CALCIUM) [Concomitant]
  9. VITAMIN D [Concomitant]
  10. NORVASC [Concomitant]
  11. ............. [Concomitant]

REACTIONS (7)
  - BRADYPHRENIA [None]
  - DIZZINESS [None]
  - HALLUCINATION [None]
  - INJURY [None]
  - LOSS OF CONSCIOUSNESS [None]
  - MEMORY IMPAIRMENT [None]
  - SPINAL FRACTURE [None]
